FAERS Safety Report 4531317-8 (Version None)
Quarter: 2004Q4

REPORT INFORMATION
  Report Type: 
  Country: None (occurrence: None)
  Receive Date: 20041206
  Receipt Date: 20041007
  Transmission Date: 20050328
  Serious: No
  Sender: FDA-Public Use
  Company Number: USA041080495

PATIENT
  Age: 67 Year
  Sex: Female
  Weight: 77 kg

DRUGS (5)
  1. CYMBALTA [Suspect]
     Indication: BACK PAIN
     Dosage: 60 MG/ 1 DAY
     Dates: start: 20040901
  2. CYMBALTA [Suspect]
     Indication: HEADACHE
     Dosage: 60 MG/ 1 DAY
     Dates: start: 20040901
  3. CYMBALTA [Suspect]
     Indication: NECK PAIN
     Dosage: 60 MG/ 1 DAY
     Dates: start: 20040901
  4. EVISTA [Concomitant]
  5. MONOPRIL [Concomitant]

REACTIONS (1)
  - ALOPECIA [None]
